FAERS Safety Report 13335671 (Version 1)
Quarter: 2017Q1

REPORT INFORMATION
  Report Type: Spontaneous
  Country: US (occurrence: US)
  Receive Date: 20170315
  Receipt Date: 20170315
  Transmission Date: 20170428
  Serious: Yes (Other)
  Sender: FDA-Public Use
  Company Number: US-ROCHE-1904706

PATIENT
  Age: 7 Year
  Sex: Male
  Weight: 35.87 kg

DRUGS (1)
  1. TAMIFLU [Suspect]
     Active Substance: OSELTAMIVIR PHOSPHATE
     Indication: INFLUENZA
     Dosage: ONCE IN MORNING AND ONCE AT NIGHT FOR 5 DAYS?10 OR 12ML(UNCONFIRMED)
     Route: 048
     Dates: start: 20170228, end: 20170305

REACTIONS (7)
  - Brain injury [Not Recovered/Not Resolved]
  - Confusional state [Recovering/Resolving]
  - Abnormal behaviour [Not Recovered/Not Resolved]
  - Hypersomnia [Recovering/Resolving]
  - Cognitive disorder [Not Recovered/Not Resolved]
  - Lethargy [Recovering/Resolving]
  - Pyrexia [Not Recovered/Not Resolved]

NARRATIVE: CASE EVENT DATE: 20170302
